FAERS Safety Report 5694743-X (Version None)
Quarter: 2008Q2

REPORT INFORMATION
  Report Type: 
  Country: None (occurrence: None)
  Receive Date: 20080403
  Receipt Date: 20080403
  Transmission Date: 20081010
  Serious: No
  Sender: FDA-Public Use
  Company Number: None

PATIENT
  Age: 51 Year
  Sex: Female
  Weight: 79.3795 kg

DRUGS (1)
  1. SUCCINYLCHOLINE CHLORIDE [Suspect]
     Indication: MUSCLE RELAXANT THERAPY
     Dosage: ONE TIME SURGERY
     Dates: start: 19990819, end: 19990819

REACTIONS (2)
  - OBSTRUCTIVE AIRWAYS DISORDER [None]
  - SLEEP APNOEA SYNDROME [None]
